FAERS Safety Report 4656595-6 (Version None)
Quarter: 2005Q2

REPORT INFORMATION
  Report Type: 
  Country: None (occurrence: None)
  Receive Date: 20050331
  Receipt Date: 20041102
  Transmission Date: 20051028
  Serious: No
  Sender: FDA-Public Use
  Company Number: US097877

PATIENT
  Age: 70 Year
  Sex: Female

DRUGS (4)
  1. NEULASTA [Suspect]
     Indication: CHEMOTHERAPY
     Dosage: 6 MG, 1 IN 1 DAYS, SC
     Route: 058
     Dates: start: 20041014
  2. IRINOTECAN HCL [Concomitant]
  3. FOLINIC ACID [Concomitant]
  4. FLUOROURACIL [Concomitant]

REACTIONS (1)
  - BLOOD PRESSURE INCREASED [None]
